FAERS Safety Report 9303576 (Version 2)
Quarter: 2013Q2

REPORT INFORMATION
  Report Type: Report from Study
  Country: MX (occurrence: MX)
  Receive Date: 20130522
  Receipt Date: 20130612
  Transmission Date: 20140414
  Serious: No
  Sender: FDA-Public Use
  Company Number: PHHY2013MX051260

PATIENT
  Age: 85 Year
  Sex: Female

DRUGS (3)
  1. ACLASTA [Suspect]
     Dosage: UNK UKN, UNK
     Route: 042
  2. EXFORGE [Suspect]
     Dosage: UNK UKN, UNK
  3. CO-DIOVAN [Suspect]
     Indication: HYPERTENSION
     Dosage: 1 DF (160/12.5 MG), DAILY
     Route: 048
     Dates: start: 201011

REACTIONS (3)
  - Feeling abnormal [Not Recovered/Not Resolved]
  - Fall [Unknown]
  - Blood pressure fluctuation [Not Recovered/Not Resolved]
